FAERS Safety Report 9406275 (Version 2)
Quarter: 2013Q3

REPORT INFORMATION
  Report Type: Spontaneous
  Country: US (occurrence: US)
  Receive Date: 20130717
  Receipt Date: 20130725
  Transmission Date: 20140515
  Serious: Yes (Other)
  Sender: FDA-Public Use
  Company Number: US-RB-053196-13

PATIENT
  Age: 24 Year
  Sex: Female

DRUGS (8)
  1. SUBUTEX [Suspect]
     Indication: DRUG DEPENDENCE
     Route: 060
     Dates: start: 20090622
  2. MARIJUANA [Suspect]
     Indication: PRODUCT USED FOR UNKNOWN INDICATION
     Dosage: DOSING DETAILS UNKNOWN; STARTED LONG BEFORE SHE STARTED SUBUTEX
     Route: 065
  3. CELEXA [Concomitant]
     Indication: DEPRESSION
     Dosage: STARTED PRIOR TO CONCEPTION
     Route: 065
     Dates: start: 20110919
  4. PANTOPRAZOLE [Concomitant]
     Indication: GASTROOESOPHAGEAL REFLUX DISEASE
     Dosage: STARTED PRIOR TO CONCEPTION
     Route: 065
     Dates: start: 20121129
  5. LAMICTAL [Concomitant]
     Indication: DEPRESSION
     Route: 065
     Dates: start: 20130326
  6. PRENATAL [Concomitant]
     Indication: PREGNANCY
     Dosage: DAILY DOSE WAS REPORTED AS ^STANDARD^
     Route: 065
  7. NICOTINE [Concomitant]
     Indication: TOBACCO USER
     Dosage: DOSING DETAILS UNKNOWN
     Route: 055
  8. MIRALAX [Concomitant]
     Indication: CONSTIPATION
     Dosage: 17 G IN WATER DAILY
     Route: 065

REACTIONS (4)
  - Drug abuse [Not Recovered/Not Resolved]
  - Exposure during pregnancy [Recovered/Resolved]
  - Vaginal haemorrhage [Recovered/Resolved]
  - Abortion spontaneous [Recovered/Resolved]
